FAERS Safety Report 8841741 (Version 1)
Quarter: 2012Q4

REPORT INFORMATION
  Report Type: Spontaneous
  Country: US (occurrence: None)
  Receive Date: 20121011
  Receipt Date: 20121011
  Transmission Date: 20130627
  Serious: Yes (Death, Hospitalization)
  Sender: FDA-Public Use
  Company Number: FK201203010

PATIENT
  Age: 69 Year
  Sex: Female

DRUGS (3)
  1. CARBOPLATIN [Suspect]
     Indication: OVARIAN CANCER
     Dosage: 1 in 3 weeks, Intravenous (not otherwise specified)
     Route: 042
     Dates: start: 20110621, end: 20110802
  2. DOCETAXEL [Suspect]
     Dosage: 1 in 3 weeks, Intravenous (not otherwise specified)
     Route: 042
     Dates: start: 20110621, end: 20110802
  3. MORAB-003 [Suspect]
     Dosage: 1 in 1 week, Intravenous (not otherwise specific)
     Route: 042
     Dates: start: 20110621, end: 20110809

REACTIONS (4)
  - Neutropenic sepsis [None]
  - Necrotising fasciitis [None]
  - Pleural effusion [None]
  - Emphysema [None]
